FAERS Safety Report 10016056 (Version 1)
Quarter: 2014Q1

REPORT INFORMATION
  Report Type: Spontaneous
  Country: US (occurrence: US)
  Receive Date: 20140317
  Receipt Date: 20140317
  Transmission Date: 20141002
  Serious: Yes (Other)
  Sender: FDA-Public Use
  Company Number: US-BAYER-2014-037010

PATIENT
  Sex: Female

DRUGS (1)
  1. BETASERON [Suspect]
     Indication: MULTIPLE SCLEROSIS
     Dosage: 0.3 MG, UNK
     Route: 058

REACTIONS (8)
  - Optic neuritis [None]
  - Dyspepsia [None]
  - Gastrooesophageal reflux disease [None]
  - Nausea [None]
  - Asthenia [None]
  - Fatigue [None]
  - Constipation [None]
  - Myalgia [None]
